FAERS Safety Report 9108600 (Version 1)
Quarter: 2013Q1

REPORT INFORMATION
  Report Type: Spontaneous
  Country: FR (occurrence: FR)
  Receive Date: 20130222
  Receipt Date: 20130222
  Transmission Date: 20140127
  Serious: Yes (Disabling)
  Sender: FDA-Public Use
  Company Number: FR-B.I. PHARMACEUTICALS,INC./RIDGEFIELD-2013-FF-00403FF

PATIENT
  Sex: Male

DRUGS (4)
  1. PRADAXA [Suspect]
     Dosage: 300 MG
     Route: 048
     Dates: start: 20130112, end: 20130125
  2. TEMERIT [Concomitant]
  3. COAPROVEL [Concomitant]
  4. CORDARONE [Concomitant]

REACTIONS (3)
  - Disturbance in attention [Recovered/Resolved]
  - Sudden onset of sleep [Recovered/Resolved]
  - Pruritus [Not Recovered/Not Resolved]
